FAERS Safety Report 5477468-5 (Version None)
Quarter: 2007Q4

REPORT INFORMATION
  Report Type: 
  Country: None (occurrence: None)
  Receive Date: 20071001
  Receipt Date: 20070914
  Transmission Date: 20080405
  Serious: Yes (Hospitalization)
  Sender: FDA-Public Use
  Company Number: 2006BI012364

PATIENT
  Age: 29 Year
  Sex: Male

DRUGS (8)
  1. NATALIZUMAB (NATALIZUMAB) [Suspect]
     Indication: MULTIPLE SCLEROSIS
     Dosage: IV ; IM
     Route: 042
     Dates: start: 20060818, end: 20070501
  2. NATALIZUMAB (NATALIZUMAB) [Suspect]
     Indication: MULTIPLE SCLEROSIS
     Dosage: IV ; IM
     Route: 042
     Dates: start: 20070717
  3. LAMOTRIGINE [Concomitant]
  4. PHENYTOIN [Concomitant]
  5. CLONAZEPAM [Concomitant]
  6. OXCARBAZEPINE [Concomitant]
  7. KEPPRA [Concomitant]
  8. SEROQUEL [Concomitant]

REACTIONS (7)
  - AGITATION [None]
  - CELLULITIS [None]
  - CONDITION AGGRAVATED [None]
  - CONFUSIONAL STATE [None]
  - CONVULSION [None]
  - PARANOIA [None]
  - STATUS EPILEPTICUS [None]
